FAERS Safety Report 5622244-3 (Version None)
Quarter: 2008Q1

REPORT INFORMATION
  Report Type: 
  Country: None (occurrence: None)
  Receive Date: 20080211
  Receipt Date: 20080128
  Transmission Date: 20080703
  Serious: Yes (Other)
  Sender: FDA-Public Use
  Company Number: ZA-ROCHE-544410

PATIENT
  Sex: Female
  Weight: 52 kg

DRUGS (2)
  1. ROACCUTANE [Suspect]
     Indication: ACNE
     Dosage: STRENGTH: 50 MG
     Route: 048
  2. ROACCUTANE [Suspect]
     Dosage: STRENGTH: 20 MG; DOSAGE REDUCED
     Route: 048

REACTIONS (4)
  - APHONIA [None]
  - CONFUSIONAL STATE [None]
  - INFLUENZA [None]
  - VISION BLURRED [None]
